FAERS Safety Report 14588497 (Version 1)
Quarter: 2018Q1

REPORT INFORMATION
  Report Type: Spontaneous
  Country: FR (occurrence: FR)
  Receive Date: 20180301
  Receipt Date: 20180301
  Transmission Date: 20180509
  Serious: Yes (Hospitalization)
  Sender: FDA-Public Use
  Company Number: FR-GLAXOSMITHKLINE-FR2018030700

PATIENT
  Age: 31 Year
  Sex: Male

DRUGS (1)
  1. MALARONE [Suspect]
     Active Substance: ATOVAQUONE\PROGUANIL HYDROCHLORIDE
     Indication: PROPHYLAXIS
     Dosage: UNK
     Route: 048

REACTIONS (2)
  - Delusional disorder, persecutory type [Recovered/Resolved with Sequelae]
  - Mental disorder [Recovered/Resolved with Sequelae]

NARRATIVE: CASE EVENT DATE: 2003
